FAERS Safety Report 7689738-0 (Version None)
Quarter: 2011Q3

REPORT INFORMATION
  Report Type: 
  Country: None (occurrence: None)
  Receive Date: 20110817
  Receipt Date: 20110804
  Transmission Date: 20111222
  Serious: Yes (Other)
  Sender: FDA-Public Use
  Company Number: US-CELGENEUS-163-21880-11080896

PATIENT
  Sex: Female
  Weight: 75.818 kg

DRUGS (9)
  1. REVLIMID [Suspect]
     Indication: MULTIPLE MYELOMA
     Dosage: 10 MILLIGRAM
     Route: 048
     Dates: start: 20110729, end: 20110802
  2. COD LIVER OIL [Concomitant]
     Dosage: 1
     Route: 048
     Dates: start: 19800101
  3. ASPIRIN [Concomitant]
     Dosage: 81 MILLIGRAM
     Route: 048
     Dates: start: 19960101
  4. LISINOPRIL [Concomitant]
     Dosage: 20 MILLIGRAM
     Route: 048
     Dates: start: 19960101
  5. KLOR-CON [Concomitant]
     Dosage: 240 MILLIGRAM
     Route: 048
     Dates: start: 19960101
  6. HYDROCHLOROTHIAZIDE [Concomitant]
     Dosage: 25 MILLIGRAM
     Route: 048
     Dates: start: 19960101
  7. REVLIMID [Suspect]
     Dosage: 10 MILLIGRAM
     Route: 048
     Dates: start: 20110807
  8. DEXAMETHASONE [Suspect]
     Dosage: 4 MILLIGRAM
     Route: 048
     Dates: start: 20110701, end: 20110804
  9. CALAN [Concomitant]
     Dosage: 20 MILLIGRAM
     Route: 048
     Dates: start: 19960101

REACTIONS (5)
  - PARAESTHESIA [None]
  - DIZZINESS [None]
  - ABASIA [None]
  - HEADACHE [None]
  - MUSCULOSKELETAL STIFFNESS [None]
